FAERS Safety Report 6504867-2 (Version None)
Quarter: 2009Q4

REPORT INFORMATION
  Report Type: 
  Country: None (occurrence: None)
  Receive Date: 20091216
  Receipt Date: 20091209
  Transmission Date: 20100525
  Serious: Yes (Other)
  Sender: FDA-Public Use
  Company Number: 2009SP040277

PATIENT
  Age: 61 Year
  Sex: Male
  Weight: 61 kg

DRUGS (4)
  1. PEG-INTRON [Suspect]
     Indication: HEPATITIS C
     Dosage: 100 MCG;QW;SC, 80 MCG;QW;SC
     Route: 058
     Dates: start: 20090623, end: 20090630
  2. PEG-INTRON [Suspect]
     Indication: HEPATITIS C
     Dosage: 100 MCG;QW;SC, 80 MCG;QW;SC
     Route: 058
     Dates: start: 20090707, end: 20091103
  3. REBETOL [Suspect]
     Indication: HEPATITIS C
     Dosage: 800 MG;QD;PO, 600 MG;QD;PO
     Route: 048
     Dates: start: 20090623, end: 20090720
  4. REBETOL [Suspect]
     Indication: HEPATITIS C
     Dosage: 800 MG;QD;PO, 600 MG;QD;PO
     Route: 048
     Dates: start: 20090721, end: 20091109

REACTIONS (1)
  - PULMONARY TUBERCULOSIS [None]
